FAERS Safety Report 5764082-7 (Version None)
Quarter: 2008Q2

REPORT INFORMATION
  Report Type: 
  Country: None (occurrence: None)
  Receive Date: 20080609
  Receipt Date: 20080407
  Transmission Date: 20081010
  Serious: No
  Sender: FDA-Public Use
  Company Number: 002#2#2008-00283

PATIENT
  Age: 76 Year
  Sex: Female
  Weight: 81.6475 kg

DRUGS (6)
  1. NEUPRO [Suspect]
     Indication: PARKINSON'S DISEASE
     Dosage: 2MG/24H, 1 IN 1 D, TRANSDERMAL; 4MG/24H, 1 IN 1 D, TRANSDERMAL; 6MG/24H, 1 IN 1 D, TRANSDERMAL
     Route: 062
     Dates: start: 20070901, end: 20070901
  2. NEUPRO [Suspect]
     Indication: PARKINSON'S DISEASE
     Dosage: 2MG/24H, 1 IN 1 D, TRANSDERMAL; 4MG/24H, 1 IN 1 D, TRANSDERMAL; 6MG/24H, 1 IN 1 D, TRANSDERMAL
     Route: 062
     Dates: start: 20070901, end: 20071001
  3. NEUPRO [Suspect]
     Indication: PARKINSON'S DISEASE
     Dosage: 2MG/24H, 1 IN 1 D, TRANSDERMAL; 4MG/24H, 1 IN 1 D, TRANSDERMAL; 6MG/24H, 1 IN 1 D, TRANSDERMAL
     Route: 062
     Dates: start: 20071001, end: 20080401
  4. SINEMET CR [Concomitant]
  5. PORCITAN [Concomitant]
  6. OINTMENT [Concomitant]

REACTIONS (7)
  - APPLICATION SITE ERYTHEMA [None]
  - APPLICATION SITE REACTION [None]
  - DERMATITIS CONTACT [None]
  - DRUG INEFFECTIVE [None]
  - LISTLESS [None]
  - NERVOUSNESS [None]
  - TREMOR [None]
